FAERS Safety Report 9596775 (Version 1)
Quarter: 2013Q4

REPORT INFORMATION
  Report Type: Spontaneous
  Country: FR (occurrence: FR)
  Receive Date: 20131004
  Receipt Date: 20131004
  Transmission Date: 20140711
  Serious: Yes (Life-Threatening)
  Sender: FDA-Public Use
  Company Number: PHHY2013FR109961

PATIENT
  Age: 63 Year
  Sex: Female

DRUGS (2)
  1. NEORAL [Suspect]
     Indication: BONE MARROW FAILURE
     Dosage: 2.5 MG/KG, QD
     Route: 048
     Dates: start: 20130726, end: 20130727
  2. ATGAM [Suspect]
     Indication: BONE MARROW FAILURE
     Dosage: 40 MG/KG, (TOTAL DOSE OF 3.8 G)
     Route: 042
     Dates: start: 20130726, end: 20130729

REACTIONS (4)
  - Anaphylactic reaction [Recovered/Resolved]
  - Renal failure acute [Recovered/Resolved]
  - Blood creatinine increased [Recovered/Resolved]
  - Urticaria [Recovered/Resolved]
